FAERS Safety Report 18356154 (Version 1)
Quarter: 2020Q4

REPORT INFORMATION
  Report Type: Spontaneous
  Country: BR (occurrence: BR)
  Receive Date: 20201007
  Receipt Date: 20201007
  Transmission Date: 20210114
  Serious: Yes (Hospitalization, Other)
  Sender: FDA-Public Use
  Company Number: BR-B.I. PHARMACEUTICALS,INC./RIDGEFIELD-2020-BI-051427

PATIENT
  Age: 59 Year
  Sex: Female
  Weight: 55 kg

DRUGS (6)
  1. CLORTALIDONA [Concomitant]
     Active Substance: CHLORTHALIDONE
     Indication: HYPERTENSION
     Route: 048
     Dates: start: 2000
  2. ATENSINA [Suspect]
     Active Substance: CLONIDINE
     Indication: DRUG THERAPY
     Route: 048
  3. CORUS [SACCHARATED IRON OXIDE] [Concomitant]
     Indication: HYPERTENSION
     Route: 048
  4. PRESSAT [Concomitant]
     Active Substance: AMLODIPINE BESYLATE
     Indication: HYPERTENSION
     Route: 048
     Dates: start: 2000
  5. ATENSINA [Suspect]
     Active Substance: CLONIDINE
     Indication: HYPERTENSION
     Route: 048
     Dates: start: 2000
  6. ATENSINA [Suspect]
     Active Substance: CLONIDINE
     Route: 048

REACTIONS (5)
  - Blood cholesterol increased [Recovered/Resolved]
  - Diabetes mellitus [Unknown]
  - Cerebrovascular accident [Recovered/Resolved]
  - Irritability [Unknown]
  - Blood pressure increased [Unknown]

NARRATIVE: CASE EVENT DATE: 201908
